FAERS Safety Report 12803485 (Version 1)
Quarter: 2016Q4

REPORT INFORMATION
  Report Type: Spontaneous
  Country: US (occurrence: US)
  Receive Date: 20161003
  Receipt Date: 20161003
  Transmission Date: 20170207
  Serious: Yes (Other)
  Sender: FDA-Public Use
  Company Number: US-AKORN PHARMACEUTICALS-2016AKN00602

PATIENT
  Age: 21 Year
  Sex: Male

DRUGS (2)
  1. UNSPECIFIED PRE-WORKOUT PRODUCT [Concomitant]
     Dosage: UNK
     Dates: end: 201608
  2. MYORISAN [Suspect]
     Active Substance: ISOTRETINOIN
     Dosage: 40 MG, 2X/DAY
     Route: 048
     Dates: start: 20160706, end: 20160828

REACTIONS (5)
  - Myalgia [Unknown]
  - Anxiety [Unknown]
  - Libido decreased [Unknown]
  - Fatigue [Unknown]
  - Diarrhoea [Unknown]

NARRATIVE: CASE EVENT DATE: 201608
